FAERS Safety Report 7606717-X (Version None)
Quarter: 2011Q3

REPORT INFORMATION
  Report Type: 
  Country: None (occurrence: None)
  Receive Date: 20110713
  Receipt Date: 20110706
  Transmission Date: 20111222
  Serious: Yes (Other)
  Sender: FDA-Public Use
  Company Number: FR-MERCK-1107FRA00040

PATIENT
  Age: 51 Year
  Sex: Female

DRUGS (4)
  1. LISINOPRIL [Concomitant]
     Route: 065
  2. JANUMET [Suspect]
     Indication: TYPE 2 DIABETES MELLITUS
     Route: 048
     Dates: start: 20110221, end: 20110506
  3. CELIPROLOL HYDROCHLORIDE [Concomitant]
     Route: 065
  4. PRAVASTATIN SODIUM [Concomitant]
     Route: 065

REACTIONS (1)
  - CYTOLYTIC HEPATITIS [None]
